FAERS Safety Report 16358778 (Version 1)
Quarter: 2019Q2

REPORT INFORMATION
  Report Type: Spontaneous
  Country: DE (occurrence: DE)
  Receive Date: 20190527
  Receipt Date: 20190527
  Transmission Date: 20190711
  Serious: Yes (Hospitalization)
  Sender: FDA-Public Use
  Company Number: DE-ELI_LILLY_AND_COMPANY-DE201905008419

PATIENT
  Age: 73 Year
  Sex: Female

DRUGS (22)
  1. HALDOL [Concomitant]
     Active Substance: HALOPERIDOL
     Dosage: 7.5 MG, DAILY
     Dates: start: 20061207, end: 20061207
  2. REMERGIL [Interacting]
     Active Substance: MIRTAZAPINE
     Indication: PRODUCT USED FOR UNKNOWN INDICATION
     Dosage: 45 MG, DAILY
     Route: 065
  3. DIAZEPAM. [Concomitant]
     Active Substance: DIAZEPAM
     Dosage: 1 MG, DAILY
     Dates: start: 20061122, end: 20061126
  4. VENLAFAXIN [Interacting]
     Active Substance: VENLAFAXINE HYDROCHLORIDE
     Indication: PRODUCT USED FOR UNKNOWN INDICATION
     Dosage: 300 MG, DAILY
     Route: 065
     Dates: start: 20061123, end: 20061205
  5. MOVICOL [Concomitant]
     Active Substance: POLYETHYLENE GLYCOL 3350\POTASSIUM CHLORIDE\SODIUM BICARBONATE\SODIUM CHLORIDE
     Indication: PRODUCT USED FOR UNKNOWN INDICATION
  6. KALINOR [POTASSIUM CHLORIDE] [Concomitant]
     Indication: PRODUCT USED FOR UNKNOWN INDICATION
  7. ASPIRIN. [Concomitant]
     Active Substance: ASPIRIN
     Indication: PRODUCT USED FOR UNKNOWN INDICATION
  8. VENLAFAXIN [Interacting]
     Active Substance: VENLAFAXINE HYDROCHLORIDE
     Dosage: 225 MG, DAILY
     Route: 065
     Dates: start: 20061116, end: 20061122
  9. EUNERPAN [Interacting]
     Active Substance: MELPERONE HYDROCHLORIDE
     Dosage: 125 MG, DAILY
     Route: 065
     Dates: start: 20061205
  10. HALDOL [Concomitant]
     Active Substance: HALOPERIDOL
     Dosage: 5 MG, DAILY
     Dates: start: 20061210, end: 20061217
  11. DIAZEPAM. [Concomitant]
     Active Substance: DIAZEPAM
     Indication: PRODUCT USED FOR UNKNOWN INDICATION
     Dosage: 2 MG, DAILY
     Dates: start: 20061120, end: 20061121
  12. DIAZEPAM. [Concomitant]
     Active Substance: DIAZEPAM
     Dosage: 5 MG, DAILY
     Dates: start: 20061102, end: 20061114
  13. VENLAFAXIN [Interacting]
     Active Substance: VENLAFAXINE HYDROCHLORIDE
     Dosage: 75 MG, DAILY
     Route: 065
     Dates: start: 20061109, end: 20061113
  14. VENLAFAXIN [Interacting]
     Active Substance: VENLAFAXINE HYDROCHLORIDE
     Dosage: 150 MG, DAILY
     Route: 065
     Dates: start: 20061114, end: 20061115
  15. HALDOL [Concomitant]
     Active Substance: HALOPERIDOL
     Indication: PRODUCT USED FOR UNKNOWN INDICATION
     Dosage: 10 MG, DAILY
     Dates: start: 20061206
  16. HALDOL [Concomitant]
     Active Substance: HALOPERIDOL
     Dosage: 7.5 MG, DAILY
     Dates: start: 20061205
  17. ZYPREXA [Suspect]
     Active Substance: OLANZAPINE
     Indication: PRODUCT USED FOR UNKNOWN INDICATION
     Dosage: 10 MG, DAILY
     Route: 065
     Dates: start: 20061114, end: 20061205
  18. PANTOZOLE [Concomitant]
     Active Substance: PANTOPRAZOLE SODIUM
     Indication: PRODUCT USED FOR UNKNOWN INDICATION
  19. DIAZEPAM. [Concomitant]
     Active Substance: DIAZEPAM
     Dosage: 4 MG, DAILY
     Dates: start: 20061115, end: 20061119
  20. EUNERPAN [Interacting]
     Active Substance: MELPERONE HYDROCHLORIDE
     Indication: PRODUCT USED FOR UNKNOWN INDICATION
     Dosage: 100 MG, DAILY
     Route: 065
     Dates: start: 20061121, end: 20061204
  21. CONCOR [Concomitant]
     Active Substance: BISOPROLOL FUMARATE
     Indication: PRODUCT USED FOR UNKNOWN INDICATION
  22. FOLSAN [Concomitant]
     Active Substance: FOLIC ACID
     Indication: PRODUCT USED FOR UNKNOWN INDICATION
     Dosage: 5 MG, DAILY

REACTIONS (6)
  - Confusional state [Recovered/Resolved]
  - Psychomotor hyperactivity [Recovered/Resolved]
  - Hallucination, visual [Recovered/Resolved]
  - Drug interaction [Unknown]
  - Disorientation [Recovered/Resolved]
  - Brief psychotic disorder with marked stressors [Recovered/Resolved]

NARRATIVE: CASE EVENT DATE: 20061205
